FAERS Safety Report 25226129 (Version 2)
Quarter: 2025Q3

REPORT INFORMATION
  Report Type: Report from Study
  Country: US (occurrence: US)
  Receive Date: 20250422
  Receipt Date: 20250810
  Transmission Date: 20251021
  Serious: Yes (Other)
  Sender: ALEXION PHARMACEUTICALS
  Company Number: US-AstraZeneca-CH-00850075A

PATIENT
  Age: 51 Year
  Sex: Female

DRUGS (1)
  1. ANIFROLUMAB [Suspect]
     Active Substance: ANIFROLUMAB
     Route: 065

REACTIONS (5)
  - Nail injury [Recovering/Resolving]
  - Foot deformity [Recovering/Resolving]
  - Localised infection [Recovering/Resolving]
  - Osteomyelitis [Recovering/Resolving]
  - Product supply issue [Unknown]

NARRATIVE: CASE EVENT DATE: 20240712
